FAERS Safety Report 5327486-2 (Version None)
Quarter: 2007Q2

REPORT INFORMATION
  Report Type: 
  Country: None (occurrence: None)
  Receive Date: 20070517
  Receipt Date: 20070202
  Transmission Date: 20071010
  Serious: Yes (Hospitalization)
  Sender: FDA-Public Use
  Company Number: US-JNJFOC-20070103670

PATIENT
  Age: 64 Year
  Sex: Female

DRUGS (4)
  1. TRAMADOL HCL [Suspect]
     Indication: SUICIDE ATTEMPT
  2. ASPIRIN [Suspect]
     Indication: SUICIDE ATTEMPT
  3. WARFARIN SODIUM [Concomitant]
     Route: 065
  4. AMITRIPTYLINE HCL [Concomitant]
     Indication: INSOMNIA
     Route: 065

REACTIONS (2)
  - INTENTIONAL OVERDOSE [None]
  - SUICIDE ATTEMPT [None]
